FAERS Safety Report 7089154-9 (Version None)
Quarter: 2010Q4

REPORT INFORMATION
  Report Type: 
  Country: None (occurrence: None)
  Receive Date: 20101108
  Receipt Date: 20101104
  Transmission Date: 20110411
  Serious: Yes (Death, Hospitalization, Other)
  Sender: FDA-Public Use
  Company Number: US-ASTRAZENECA-2010SE40706

PATIENT
  Age: 49 Year
  Sex: Male
  Weight: 77.1 kg

DRUGS (12)
  1. CRESTOR [Suspect]
     Indication: HYPERCHOLESTEROLAEMIA
     Route: 048
  2. SEROQUEL XR [Suspect]
     Indication: DEPRESSION
     Route: 048
  3. METFORMIN HCL [Concomitant]
     Indication: TYPE 2 DIABETES MELLITUS
  4. PRANDIN [Concomitant]
     Indication: TYPE 2 DIABETES MELLITUS
  5. TRICOR [Concomitant]
     Indication: HYPERCHOLESTEROLAEMIA
  6. CYMBALTA [Concomitant]
     Indication: DEPRESSION
  7. LEXAPRO [Concomitant]
     Indication: DEPRESSION
  8. EFFEXOR [Concomitant]
     Indication: DEPRESSION
  9. TRAZODONE HCL [Concomitant]
     Indication: DEPRESSION
  10. HYDROXYZINE [Concomitant]
     Indication: ANXIETY
  11. ATRA [Concomitant]
  12. CHEMOTHERAPY [Concomitant]

REACTIONS (7)
  - ALCOHOLIC PANCREATITIS [None]
  - JOINT SWELLING [None]
  - LEUKAEMIA [None]
  - MALAISE [None]
  - MULTI-ORGAN FAILURE [None]
  - PAIN [None]
  - SUICIDAL IDEATION [None]
